FAERS Safety Report 19075435 (Version 2)
Quarter: 2021Q2

REPORT INFORMATION
  Report Type: Report from Study
  Country: None (occurrence: CA)
  Receive Date: 20210331
  Receipt Date: 20210506
  Transmission Date: 20210717
  Serious: Yes (Other)
  Sender: FDA-Public Use
  Company Number: CA-ABBVIE-21K-028-3834972-00

PATIENT
  Age: 61 Year
  Sex: Male
  Weight: 95.4 kg

DRUGS (19)
  1. PANTOPRAZOLE [Concomitant]
     Active Substance: PANTOPRAZOLE
     Indication: GASTROOESOPHAGEAL REFLUX DISEASE
  2. SULFATRIM [Concomitant]
     Active Substance: SULFAMETHOXAZOLE\TRIMETHOPRIM
     Indication: ARTHRITIS INFECTIVE
  3. ACETYLSALICYLIC ACID [Concomitant]
     Active Substance: ASPIRIN
     Indication: THROMBOSIS
  4. SKYRIZI [Suspect]
     Active Substance: RISANKIZUMAB-RZAA
     Route: 058
     Dates: start: 20210129, end: 20210216
  5. NAPROXEN. [Concomitant]
     Active Substance: NAPROXEN
     Indication: ARTHRALGIA
  6. RIVAROXABAN [Concomitant]
     Active Substance: RIVAROXABAN
     Indication: THROMBOSIS PROPHYLAXIS
  7. TYLENOL EXTRA STRENGTH [Concomitant]
     Active Substance: ACETAMINOPHEN
     Indication: PAIN MANAGEMENT
  8. TEVA LENOLTEC NO. 3 [Concomitant]
     Active Substance: ACETAMINOPHEN\CAFFEINE\CODEINE
     Indication: ARTHRALGIA
  9. ATORVASTATIN [Concomitant]
     Active Substance: ATORVASTATIN
     Indication: HYPERLIPIDAEMIA
  10. NAPROXEN. [Concomitant]
     Active Substance: NAPROXEN
     Indication: ARTHRALGIA
  11. TEVA LENOLTEC NO. 3 [Concomitant]
     Active Substance: ACETAMINOPHEN\CAFFEINE\CODEINE
     Indication: ARTHRALGIA
  12. CLOXACILLIN [Concomitant]
     Active Substance: CLOXACILLIN
     Indication: ARTHRITIS INFECTIVE
  13. SKYRIZI [Suspect]
     Active Substance: RISANKIZUMAB-RZAA
     Indication: PSORIASIS
     Route: 058
     Dates: start: 20200115, end: 20201209
  14. AVENTYL [Concomitant]
     Active Substance: NORTRIPTYLINE HYDROCHLORIDE
     Indication: DEPRESSION
  15. MEPILEX DRESSING [Concomitant]
     Indication: PROPHYLAXIS
  16. TAMSULOSIN CR [Concomitant]
     Active Substance: TAMSULOSIN
     Indication: BENIGN PROSTATIC HYPERPLASIA
  17. TYLENOL EXTRA STRENGTH [Concomitant]
     Active Substance: ACETAMINOPHEN
     Indication: PAIN MANAGEMENT
  18. HYDROMORPHONE HCL [Concomitant]
     Active Substance: HYDROMORPHONE HYDROCHLORIDE
     Indication: PAIN MANAGEMENT
  19. RUPALL [Concomitant]
     Active Substance: RUPATADINE FUMARATE
     Indication: PRODUCT USED FOR UNKNOWN INDICATION

REACTIONS (17)
  - Red blood cells urine [Unknown]
  - Arthralgia [Unknown]
  - Red cell distribution width increased [Unknown]
  - Glomerular filtration rate decreased [Unknown]
  - Bacterial test positive [Unknown]
  - Swelling [Unknown]
  - Monocyte count increased [Unknown]
  - Arthritis infective [Not Recovered/Not Resolved]
  - Blood urine present [Unknown]
  - Haematocrit decreased [Unknown]
  - Blood creatinine increased [Unknown]
  - White blood cell count increased [Unknown]
  - Glycosylated haemoglobin increased [Unknown]
  - Eosinophil count increased [Unknown]
  - Blood lactate dehydrogenase increased [Unknown]
  - Urine analysis abnormal [Unknown]
  - Haemoglobin decreased [Unknown]

NARRATIVE: CASE EVENT DATE: 20200501
